FAERS Safety Report 15613117 (Version 1)
Quarter: 2018Q4

REPORT INFORMATION
  Report Type: Spontaneous
  Country: US (occurrence: US)
  Receive Date: 20181113
  Receipt Date: 20181113
  Transmission Date: 20190205
  Serious: Yes (Hospitalization)
  Sender: FDA-Public Use
  Company Number: US-PERRIGO-18US012585

PATIENT
  Age: 27 Year
  Sex: Female

DRUGS (1)
  1. ACETAMINOPHEN. [Suspect]
     Active Substance: ACETAMINOPHEN
     Indication: TOOTHACHE
     Dosage: UNKNOWN, UNKNOWN
     Route: 048

REACTIONS (3)
  - Coagulation test abnormal [Recovering/Resolving]
  - Overdose [Recovering/Resolving]
  - Hepatotoxicity [Recovering/Resolving]
